FAERS Safety Report 7406841-0 (Version None)
Quarter: 2011Q2

REPORT INFORMATION
  Report Type: 
  Country: None (occurrence: None)
  Receive Date: 20110411
  Receipt Date: 20110401
  Transmission Date: 20111010
  Serious: Yes (Disabling)
  Sender: FDA-Public Use
  Company Number: DE-TEVA-275238GER

PATIENT
  Age: 44 Year
  Sex: Female

DRUGS (2)
  1. MAXALT [Concomitant]
     Indication: MIGRAINE
     Route: 048
  2. COPAXONE [Suspect]
     Dosage: 20 MILLIGRAM;
     Route: 058
     Dates: start: 20070701, end: 20090501

REACTIONS (6)
  - ANTINUCLEAR ANTIBODY INCREASED [None]
  - NAIL BED BLEEDING [None]
  - APHTHOUS STOMATITIS [None]
  - MIXED CONNECTIVE TISSUE DISEASE [None]
  - SCLERODERMA [None]
  - RAYNAUD'S PHENOMENON [None]
